FAERS Safety Report 8741677 (Version 6)
Quarter: 2013Q4

REPORT INFORMATION
  Report Type: Report from Study
  Country: US (occurrence: US)
  Receive Date: 20120824
  Receipt Date: 20131007
  Transmission Date: 20140711
  Serious: Yes (Hospitalization)
  Sender: FDA-Public Use
  Company Number: US-BIOGENIDEC-2012BI032316

PATIENT
  Age: 19 Year
  Sex: Male
  Weight: 66 kg

DRUGS (5)
  1. TYSABRI [Suspect]
     Indication: CROHN^S DISEASE
     Route: 042
     Dates: start: 20110318, end: 20111215
  2. TYSABRI [Suspect]
     Indication: CROHN^S DISEASE
     Route: 042
     Dates: start: 20120410, end: 20130613
  3. TYSABRI [Suspect]
     Indication: CROHN^S DISEASE
     Route: 042
     Dates: start: 20121108, end: 20121212
  4. PREDNISONE [Concomitant]
     Dates: start: 201209, end: 201210
  5. METHYLPREDNISOLONE [Concomitant]

REACTIONS (4)
  - Enterocutaneous fistula [Not Recovered/Not Resolved]
  - Perirectal abscess [Recovered/Resolved]
  - Perineal abscess [Recovered/Resolved]
  - Crohn^s disease [Not Recovered/Not Resolved]
